FAERS Safety Report 20196452 (Version 3)
Quarter: 2022Q1

REPORT INFORMATION
  Report Type: Spontaneous
  Country: US (occurrence: US)
  Receive Date: 20211216
  Receipt Date: 20220110
  Transmission Date: 20220424
  Serious: Yes (Hospitalization, Other)
  Sender: FDA-Public Use
  Company Number: US-Covis Pharma GmbH-2021COV24961

PATIENT
  Age: 0 Day
  Sex: Male
  Weight: 2.576 kg

DRUGS (1)
  1. MAKENA [Suspect]
     Active Substance: HYDROXYPROGESTERONE CAPROATE
     Indication: Foetal exposure during pregnancy
     Route: 064
     Dates: start: 20210806, end: 20211202

REACTIONS (2)
  - Poor feeding infant [Unknown]
  - Premature baby [Recovered/Resolved with Sequelae]

NARRATIVE: CASE EVENT DATE: 20211210
